FAERS Safety Report 7384163-4 (Version None)
Quarter: 2011Q1

REPORT INFORMATION
  Report Type: 
  Country: None (occurrence: None)
  Receive Date: 20110330
  Receipt Date: 20110323
  Transmission Date: 20110831
  Serious: Yes (Hospitalization)
  Sender: FDA-Public Use
  Company Number: B0707766A

PATIENT
  Sex: Female
  Weight: 2.3 kg

DRUGS (3)
  1. SEROPRAM [Suspect]
     Dosage: 20MG PER DAY
     Route: 064
     Dates: start: 20100301, end: 20101108
  2. LAMICTAL [Suspect]
     Indication: EPILEPSY
     Dosage: 150MG TWICE PER DAY
     Route: 064
     Dates: start: 20100301, end: 20100801
  3. TRANXENE [Suspect]
     Route: 064
     Dates: start: 20100301, end: 20101108

REACTIONS (4)
  - INFANTILE APNOEIC ATTACK [None]
  - DRUG EXPOSURE DURING PREGNANCY [None]
  - PREMATURE BABY [None]
  - RESPIRATORY DISTRESS [None]
